FAERS Safety Report 6025136-3 (Version None)
Quarter: 2008Q4

REPORT INFORMATION
  Report Type: 
  Country: None (occurrence: None)
  Receive Date: 20081231
  Receipt Date: 20081224
  Transmission Date: 20090506
  Serious: Yes (Other)
  Sender: FDA-Public Use
  Company Number: CA-AMGEN-KDL324995

PATIENT
  Sex: Female

DRUGS (3)
  1. ENBREL [Suspect]
     Indication: DRUG USE FOR UNKNOWN INDICATION
     Route: 058
     Dates: start: 20081215
  2. ZOLEDRONIC ACID [Concomitant]
     Route: 042
     Dates: start: 20081127
  3. MORPHINE [Concomitant]

REACTIONS (2)
  - DERMATITIS ALLERGIC [None]
  - MALIGNANT HISTIOCYTOSIS [None]
